FAERS Safety Report 5647724-6 (Version None)
Quarter: 2008Q1

REPORT INFORMATION
  Report Type: 
  Country: None (occurrence: None)
  Receive Date: 20080303
  Receipt Date: 20080221
  Transmission Date: 20080703
  Serious: Yes (Other)
  Sender: FDA-Public Use
  Company Number: ES-GILEAD-2008-0015442

PATIENT
  Sex: Male

DRUGS (4)
  1. EMTRICITABINE/TENOFOVIR DISOPROXIL FUMARATE [Suspect]
     Dosage: 300 MG/200 MG
     Route: 048
     Dates: start: 20060703, end: 20080212
  2. LOPINAVIR AND RITONAVIR [Suspect]
     Dosage: 2400MG/600MG
     Route: 048
     Dates: start: 20060703, end: 20080212
  3. PRAVASTATINA [Concomitant]
     Dates: start: 20020604
  4. TRAZODONE HCL [Concomitant]
     Dates: start: 20030501, end: 20080109

REACTIONS (1)
  - HYPERLIPIDAEMIA [None]
